FAERS Safety Report 8471117-X (Version None)
Quarter: 2012Q2

REPORT INFORMATION
  Report Type: 
  Country: None (occurrence: None)
  Receive Date: 20120627
  Receipt Date: 20120622
  Transmission Date: 20120825
  Serious: No
  Sender: FDA-Public Use
  Company Number: VE-PFIZER INC-2012144689

PATIENT
  Age: 50 Year
  Sex: Male

DRUGS (1)
  1. CADUET [Suspect]
     Indication: HYPERCHOLESTEROLAEMIA
     Dosage: 5/20MG
     Route: 048
     Dates: start: 20120401, end: 20120601

REACTIONS (1)
  - NO ADVERSE EVENT [None]
